FAERS Safety Report 7433954-X (Version None)
Quarter: 2011Q2

REPORT INFORMATION
  Report Type: 
  Country: None (occurrence: None)
  Receive Date: 20110420
  Receipt Date: 20110420
  Transmission Date: 20111010
  Serious: No
  Sender: FDA-Public Use
  Company Number: None

PATIENT
  Age: 71 Year
  Sex: Male
  Weight: 81.6475 kg

DRUGS (1)
  1. OMEPRAZOLE [Suspect]
     Indication: GASTROINTESTINAL DISORDER
     Dosage: 1CAP ONCE DAILY PO
     Route: 048
     Dates: start: 20110129, end: 20110415

REACTIONS (10)
  - VERTIGO [None]
  - FAECES HARD [None]
  - HEADACHE [None]
  - ANXIETY [None]
  - TENDERNESS [None]
  - DIZZINESS [None]
  - STOMATITIS [None]
  - APHTHOUS STOMATITIS [None]
  - CONFUSIONAL STATE [None]
  - DEAFNESS UNILATERAL [None]
